FAERS Safety Report 6712415-7 (Version None)
Quarter: 2010Q2

REPORT INFORMATION
  Report Type: 
  Country: None (occurrence: None)
  Receive Date: 20100506
  Receipt Date: 20100421
  Transmission Date: 20101027
  Serious: Yes (Other)
  Sender: FDA-Public Use
  Company Number: IT-RANBAXY-2010RR-33448

PATIENT

DRUGS (3)
  1. AMOXICILLIN [Suspect]
     Indication: TOOTH DISORDER
     Dosage: 1 MG, BID
     Route: 048
     Dates: start: 20100417, end: 20100419
  2. MOMENDOL [Concomitant]
     Dosage: 220 MG, UNK
     Route: 048
  3. ZIMOX [Concomitant]

REACTIONS (2)
  - ERYTHEMA [None]
  - SWOLLEN TONGUE [None]
